FAERS Safety Report 7790517-4 (Version None)
Quarter: 2011Q3

REPORT INFORMATION
  Report Type: 
  Country: None (occurrence: None)
  Receive Date: 20110930
  Receipt Date: 20110922
  Transmission Date: 20111222
  Serious: Yes (Other)
  Sender: FDA-Public Use
  Company Number: PHHO2010US16308

PATIENT
  Sex: Female
  Weight: 51.8 kg

DRUGS (17)
  1. AMBIEN [Concomitant]
     Indication: STRESS
     Dosage: UNK
     Dates: start: 20100225
  2. LYRICA [Concomitant]
     Indication: HERPES ZOSTER
     Dosage: UNK
     Dates: start: 20100520
  3. PREDNISONE [Concomitant]
     Indication: BACK PAIN
     Dosage: UNK
     Dates: start: 20100505, end: 20100507
  4. XANAX [Concomitant]
     Indication: ANXIETY
     Dosage: UNK
     Dates: start: 20100810
  5. ASCORBIC ACID [Concomitant]
     Dosage: UNK
     Dates: start: 20090130
  6. VITAMIN B COMPLEX CAP [Concomitant]
     Dosage: UNK
     Dates: start: 20090130
  7. DEXAMETHASONE [Concomitant]
     Indication: HERPES ZOSTER
     Dosage: UNK
     Dates: start: 20100507
  8. CITRICAL [Concomitant]
     Dosage: UNK
     Dates: start: 20090130
  9. HYDROCHLOROTHIAZIDE [Concomitant]
     Indication: HYPERTENSION
     Dosage: UNK
     Dates: start: 20100201
  10. GILENYA [Suspect]
     Indication: MULTIPLE SCLEROSIS
     Dosage: 0.5 MG, QD
     Route: 048
     Dates: start: 20080909, end: 20100507
  11. STEROIDS NOS [Concomitant]
     Indication: ACANTHOMA
     Dosage: UNK
     Dates: start: 20090921, end: 20091015
  12. AMOXICILLIN [Concomitant]
     Indication: TOOTH EXTRACTION
     Dosage: UNK
     Dates: start: 20090130, end: 20090210
  13. LEXAPRO [Concomitant]
     Indication: DEPRESSION
     Dosage: UNK
     Dates: start: 20100810
  14. DIOVAN [Concomitant]
     Indication: HYPERTENSION
     Dosage: UNK
     Dates: start: 20090814, end: 20100131
  15. VICODIN [Concomitant]
     Indication: HERPES ZOSTER
     Dosage: UNK
     Dates: start: 20100507
  16. ZOVIRAX [Concomitant]
     Indication: HERPES ZOSTER
  17. VITAMIN E [Concomitant]
     Dosage: UNK
     Dates: start: 20090130

REACTIONS (4)
  - PNEUMONIA CRYPTOCOCCAL [None]
  - PNEUMOTHORAX [None]
  - TOOTH ABSCESS [None]
  - POST PROCEDURAL COMPLICATION [None]
